FAERS Safety Report 6921055-6 (Version None)
Quarter: 2010Q3

REPORT INFORMATION
  Report Type: 
  Country: None (occurrence: None)
  Receive Date: 20100804
  Receipt Date: 20090722
  Transmission Date: 20110219
  Serious: No
  Sender: FDA-Public Use
  Company Number: 2009-1685

PATIENT
  Age: 41 Year
  Sex: Female
  Weight: 86.4 kg

DRUGS (7)
  1. SOMATULINE DEPOT [Suspect]
     Indication: CARCINOID TUMOUR
     Dosage: (90 MG, 1 IN 28 D), SUBCUTANEOUS
     Route: 058
     Dates: start: 20090101
  2. NASONEX [Concomitant]
  3. CLARITIN [Concomitant]
  4. WELLBUTRIN [Concomitant]
  5. MULTIVITAMIN (MULTIVITAMIN /00831701/) [Concomitant]
  6. FISH OIL (FISH OIL) [Concomitant]
  7. VITAMIN B12 [Concomitant]

REACTIONS (1)
  - INJECTION SITE PAIN [None]
